FAERS Safety Report 24398006 (Version 2)
Quarter: 2024Q4

REPORT INFORMATION
  Report Type: Spontaneous
  Country: LT (occurrence: LT)
  Receive Date: 20241004
  Receipt Date: 20241017
  Transmission Date: 20250114
  Serious: Yes (Other)
  Sender: BAYER HEALTHCARE PHARMACEUTICALS INC.
  Company Number: LT-BAYER-2024A139412

PATIENT
  Age: 73 Year
  Sex: Male

DRUGS (6)
  1. XOFIGO [Suspect]
     Active Substance: RADIUM RA-223 DICHLORIDE
     Indication: Prostate cancer stage III
     Dosage: UNK
  2. XOFIGO [Suspect]
     Active Substance: RADIUM RA-223 DICHLORIDE
     Indication: Prostate cancer stage III
     Dosage: UNK
  3. TRAMADOL [Concomitant]
     Active Substance: TRAMADOL
     Dosage: 100MG
     Route: 030
  4. Dolmen [Concomitant]
     Dosage: 50MG
  5. KETOROLAC TROMETHAMINE [Concomitant]
     Active Substance: KETOROLAC TROMETHAMINE
     Dosage: 30MG
  6. FENTANYL [Concomitant]
     Active Substance: FENTANYL
     Dosage: 50MCG/H EVERY 72H

REACTIONS (5)
  - Metastasis [None]
  - Metastases to bone [Not Recovered/Not Resolved]
  - Prostatic specific antigen increased [None]
  - Back pain [None]
  - Bone lesion [None]

NARRATIVE: CASE EVENT DATE: 20240901
